FAERS Safety Report 5376281-7 (Version None)
Quarter: 2007Q2

REPORT INFORMATION
  Report Type: 
  Country: None (occurrence: None)
  Receive Date: 20070627
  Receipt Date: 20070627
  Transmission Date: 20071010
  Serious: Yes (Other)
  Sender: FDA-Public Use
  Company Number: None

PATIENT
  Age: 5 Year
  Sex: Male

DRUGS (2)
  1. SIMVASTATIN [Suspect]
     Indication: HYPERLIPIDAEMIA
     Dosage: 40MG 1D PO
     Route: 048
     Dates: start: 19970101, end: 20070101
  2. PRAVASTATIN [Suspect]
     Indication: HYPERLIPIDAEMIA
     Dosage: 40MG ID PO
     Route: 048
     Dates: start: 20070301, end: 20070401

REACTIONS (3)
  - CYSTITIS INTERSTITIAL [None]
  - MUSCULOSKELETAL PAIN [None]
  - PELVIC PAIN [None]
